FAERS Safety Report 10098297 (Version 1)
Quarter: 2014Q2

REPORT INFORMATION
  Report Type: Spontaneous
  Country: US (occurrence: None)
  Receive Date: 20140421
  Receipt Date: 20140421
  Transmission Date: 20141212
  Serious: Yes (Hospitalization)
  Sender: FDA-Public Use
  Company Number: UTC-047213

PATIENT
  Age: 44 Year
  Sex: Male
  Weight: 129.2 kg

DRUGS (3)
  1. REMODULIN (10 MILLIGRAM/MILLILITERS INJECTION FOR INFUSION) (TREPROSTINIL SODIUM) [Suspect]
     Indication: COR PULMONALE CHRONIC
     Dosage: 93.6 UG/KG (0.065 UG/KG, 1 IN 1 D
     Route: 058
     Dates: start: 20130601
  2. LETAIRIS (AMBRISENTAN) (UNKNOWN) [Concomitant]
  3. ADCIRCA (TADALAFIL) (UNKNOWN) [Concomitant]

REACTIONS (1)
  - Pneumonia [None]
